FAERS Safety Report 6470384-1 (Version None)
Quarter: 2009Q4

REPORT INFORMATION
  Report Type: 
  Country: None (occurrence: None)
  Receive Date: 20091203
  Receipt Date: 20091126
  Transmission Date: 20100525
  Serious: Yes (Hospitalization)
  Sender: FDA-Public Use
  Company Number: FR-PFIZER INC-2009288781

PATIENT
  Age: 55 Year
  Sex: Female

DRUGS (20)
  1. MEDROL [Suspect]
     Dosage: 100 MG, 1X/DAY
     Route: 048
     Dates: start: 20090822, end: 20090908
  2. OFLOCET [Suspect]
     Indication: PYELONEPHRITIS
     Dosage: 200 MG, 2X/DAY
     Route: 048
     Dates: start: 20090903, end: 20090910
  3. LOXEN [Suspect]
     Dosage: 50 MG, 2X/DAY
     Route: 048
     Dates: start: 20090827, end: 20090903
  4. NEURONTIN [Concomitant]
     Dosage: UNK
  5. SPASFON [Concomitant]
     Dosage: 1 DF, 1X/DAY
     Route: 042
     Dates: start: 20090825, end: 20090827
  6. RIVOTRIL [Concomitant]
     Dosage: 2 MG, 1X/DAY
     Route: 042
     Dates: start: 20090824, end: 20090828
  7. RIFATER [Concomitant]
     Dosage: UNK
     Dates: start: 20090902
  8. MYAMBUTOL [Concomitant]
     Dosage: UNK
     Dates: start: 20090902
  9. CORTANCYL [Concomitant]
     Dosage: UNK
     Dates: start: 20090909
  10. CORTANCYL [Concomitant]
     Dosage: UNK
     Dates: start: 20090917
  11. DUPHALAC [Concomitant]
     Dosage: UNK
     Dates: start: 20090827
  12. ACTISKENAN [Concomitant]
     Dosage: UNK
     Dates: start: 20090818
  13. LANSOPRAZOLE [Concomitant]
     Dosage: UNK
     Dates: start: 20090818
  14. DIFFU K [Concomitant]
     Dosage: UNK
     Dates: start: 20090818
  15. LOVENOX [Concomitant]
     Dosage: UNK
     Dates: start: 20090818
  16. LAROXYL [Concomitant]
     Dosage: UNK
  17. DOLIPRANE [Concomitant]
     Dosage: UNK
  18. XYZAL [Concomitant]
     Dosage: UNK
  19. CONTRAMAL [Concomitant]
     Dosage: UNK
  20. PARACETAMOL (PERFALGAN) [Concomitant]
     Dosage: UNK
     Dates: start: 20090824, end: 20090828

REACTIONS (1)
  - ACUTE GENERALISED EXANTHEMATOUS PUSTULOSIS [None]
